FAERS Safety Report 17055015 (Version 3)
Quarter: 2020Q2

REPORT INFORMATION
  Report Type: Spontaneous
  Country: US (occurrence: US)
  Receive Date: 20191120
  Receipt Date: 20200616
  Transmission Date: 20200713
  Serious: No
  Sender: FDA-Public Use
  Company Number: US-SA-2019SA320501

PATIENT

DRUGS (22)
  1. FLOVENT [Concomitant]
     Active Substance: FLUTICASONE PROPIONATE
  2. REMERON [Concomitant]
     Active Substance: MIRTAZAPINE
  3. WARFARIN SODIUM. [Concomitant]
     Active Substance: WARFARIN SODIUM
  4. WARFARIN SODIUM. [Concomitant]
     Active Substance: WARFARIN SODIUM
  5. COZAAR [Concomitant]
     Active Substance: LOSARTAN POTASSIUM
  6. METOPROLOL. [Concomitant]
     Active Substance: METOPROLOL
  7. BUDESONIDE. [Concomitant]
     Active Substance: BUDESONIDE
  8. FINASTERIDE. [Concomitant]
     Active Substance: FINASTERIDE
  9. METFORMIN HYDROCHLORIDE. [Concomitant]
     Active Substance: METFORMIN HYDROCHLORIDE
  10. NITROGLYCERIN. [Concomitant]
     Active Substance: NITROGLYCERIN
  11. PREDNISONE. [Concomitant]
     Active Substance: PREDNISONE
  12. OLANZAPINE. [Concomitant]
     Active Substance: OLANZAPINE
  13. VENTOLIN HFA [Concomitant]
     Active Substance: ALBUTEROL SULFATE
  14. DUPIXENT [Suspect]
     Active Substance: DUPILUMAB
     Dosage: 300 MG, QOW
     Route: 058
     Dates: start: 20191114
  15. LANTUS [Concomitant]
     Active Substance: INSULIN GLARGINE
  16. PANTOPRAZOLE [Concomitant]
     Active Substance: PANTOPRAZOLE
  17. SINGULAIR [Concomitant]
     Active Substance: MONTELUKAST SODIUM
  18. VENLAFAXINE [Concomitant]
     Active Substance: VENLAFAXINE HYDROCHLORIDE
  19. SPIRIVA [Concomitant]
     Active Substance: TIOTROPIUM BROMIDE MONOHYDRATE
  20. VITAMIN B12 [Concomitant]
     Active Substance: CYANOCOBALAMIN
  21. FUROSEMIDE. [Concomitant]
     Active Substance: FUROSEMIDE
  22. POTASSIUM [Concomitant]
     Active Substance: POTASSIUM

REACTIONS (2)
  - Depression [Not Recovered/Not Resolved]
  - Product dose omission [Unknown]

NARRATIVE: CASE EVENT DATE: 20191108
